FAERS Safety Report 7283743-4 (Version None)
Quarter: 2011Q1

REPORT INFORMATION
  Report Type: 
  Country: None (occurrence: None)
  Receive Date: 20110131
  Receipt Date: 20110114
  Transmission Date: 20110831
  Serious: Yes (Death)
  Sender: FDA-Public Use
  Company Number: 1000018458

PATIENT
  Age: 48 Year
  Sex: Male

DRUGS (6)
  1. AMLODIPINE [Suspect]
  2. LOTENSIN [Suspect]
  3. LAMOTRIGINE [Suspect]
  4. CITALOPRAM HYDROBROMIDE [Suspect]
  5. ETHANOL (ETHANOL) [Suspect]
  6. METHADONE (METHADONE) [Suspect]

REACTIONS (3)
  - RESPIRATORY ARREST [None]
  - CARDIAC ARREST [None]
  - SUICIDAL IDEATION [None]
